FAERS Safety Report 17554752 (Version 2)
Quarter: 2021Q2

REPORT INFORMATION
  Report Type: Report from Study
  Country: US (occurrence: US)
  Receive Date: 20200318
  Receipt Date: 20210629
  Transmission Date: 20210716
  Serious: No
  Sender: FDA-Public Use
  Company Number: US-SAGE-2020SAGE000021

PATIENT
  Age: 38 Year
  Sex: Female

DRUGS (1)
  1. ZULRESSO [Suspect]
     Active Substance: BREXANOLONE
     Indication: PERINATAL DEPRESSION
     Dosage: BAG 1 RAN 17 HOURS 24 MINUTES, BAG 2 RAN 16 HOURS 11 MINUTES, BAG 3 RAN 13 HOURS 5 MINUTES, BAG 4 RA
     Route: 042
     Dates: start: 20200218, end: 20200220

REACTIONS (3)
  - Headache [Recovered/Resolved]
  - Fatigue [Unknown]
  - Medication error [Recovered/Resolved]

NARRATIVE: CASE EVENT DATE: 20200218
